FAERS Safety Report 7090190-7 (Version None)
Quarter: 2010Q4

REPORT INFORMATION
  Report Type: 
  Country: None (occurrence: None)
  Receive Date: 20101104
  Receipt Date: 20101104
  Transmission Date: 20110411
  Serious: No
  Sender: FDA-Public Use
  Company Number: None

PATIENT
  Sex: Female

DRUGS (4)
  1. PPD [Suspect]
     Indication: HERPES ZOSTER
     Route: 023
     Dates: start: 20100312
  2. PPD [Suspect]
     Indication: IMMUNISATION
     Route: 023
     Dates: start: 20100312
  3. CELEXA [Suspect]
     Dosage: CELEXA 20 MG
  4. SYNTHROID [Suspect]
     Dosage: SYNTHROID 100 MCG

REACTIONS (5)
  - BURNING SENSATION [None]
  - ERYTHEMA [None]
  - PRURITUS [None]
  - RASH [None]
  - SKIN WARM [None]
